FAERS Safety Report 6412516-7 (Version None)
Quarter: 2009Q4

REPORT INFORMATION
  Report Type: 
  Country: None (occurrence: None)
  Receive Date: 20091023
  Receipt Date: 20090609
  Transmission Date: 20100525
  Serious: No
  Sender: FDA-Public Use
  Company Number: US-BRISTOL-MYERS SQUIBB COMPANY-14655013

PATIENT
  Age: 44 Year
  Sex: Female
  Weight: 47 kg

DRUGS (4)
  1. KENALOG-40 [Suspect]
     Indication: HYPERSENSITIVITY
     Dates: start: 20090401
  2. SINGULAIR [Concomitant]
  3. ALLEGRA [Concomitant]
  4. PREVACID [Concomitant]

REACTIONS (1)
  - SKIN ATROPHY [None]
